FAERS Safety Report 13190190 (Version 1)
Quarter: 2017Q1

REPORT INFORMATION
  Report Type: Spontaneous
  Country: KZ (occurrence: KZ)
  Receive Date: 20170206
  Receipt Date: 20170206
  Transmission Date: 20170428
  Serious: Yes (Other)
  Sender: FDA-Public Use
  Company Number: KZ-JNJFOC-20170204146

PATIENT
  Age: 71 Year
  Sex: Female

DRUGS (1)
  1. XARELTO [Suspect]
     Active Substance: RIVAROXABAN
     Indication: ATRIAL FIBRILLATION
     Route: 048
     Dates: start: 201505, end: 201508

REACTIONS (1)
  - Bronchospasm [Recovering/Resolving]

NARRATIVE: CASE EVENT DATE: 201508
